FAERS Safety Report 19010448 (Version 3)
Quarter: 2021Q2

REPORT INFORMATION
  Report Type: Other
  Country: CN (occurrence: CN)
  Receive Date: 20210315
  Receipt Date: 20210422
  Transmission Date: 20210717
  Serious: Yes (Death, Other)
  Sender: FDA-Public Use
  Company Number: CN-ROCHE-2786079

PATIENT
  Age: 51 Year
  Sex: Male

DRUGS (6)
  1. DOPAMINE [Concomitant]
     Active Substance: DOPAMINE HYDROCHLORIDE
  2. METHYLPREDNISOLONE. [Suspect]
     Active Substance: METHYLPREDNISOLONE
     Indication: ENCEPHALITIS AUTOIMMUNE
     Route: 042
  3. RITUXIMAB. [Suspect]
     Active Substance: RITUXIMAB
     Indication: ENCEPHALITIS AUTOIMMUNE
     Route: 041
     Dates: start: 20191216
  4. GAMMAGLOBULIN [Suspect]
     Active Substance: HUMAN IMMUNOGLOBULIN G
     Indication: ENCEPHALITIS AUTOIMMUNE
     Route: 042
     Dates: start: 20191125
  5. GAMMAGLOBULIN [Suspect]
     Active Substance: HUMAN IMMUNOGLOBULIN G
     Route: 042
     Dates: start: 20191220
  6. PROPOFOL. [Concomitant]
     Active Substance: PROPOFOL

REACTIONS (6)
  - Respiratory failure [Fatal]
  - Candida infection [Unknown]
  - Cardiac arrest [Fatal]
  - Pneumonia [Fatal]
  - Staphylococcal infection [Unknown]
  - Off label use [Unknown]
